FAERS Safety Report 6042385-9 (Version None)
Quarter: 2009Q1

REPORT INFORMATION
  Report Type: 
  Country: None (occurrence: None)
  Receive Date: 20090116
  Receipt Date: 20090106
  Transmission Date: 20090719
  Serious: Yes (Other)
  Sender: FDA-Public Use
  Company Number: KR-SANOFI-SYNTHELABO-A01200900123

PATIENT
  Age: 61 Year
  Sex: Male
  Weight: 57 kg

DRUGS (2)
  1. XATRAL XL [Suspect]
     Indication: BENIGN PROSTATIC HYPERPLASIA
     Route: 048
     Dates: start: 20081024
  2. SUPPLEMENT SELENIUM TOCOPHEROLA ASCORBIN ACID RETINAL PALMITATE [Concomitant]
     Indication: SUPPLEMENTATION THERAPY
     Dosage: UNK
     Route: 048
     Dates: start: 20081228

REACTIONS (2)
  - CONTUSION [None]
  - THROMBOCYTOPENIA [None]
